FAERS Safety Report 14153792 (Version 2)
Quarter: 2018Q2

REPORT INFORMATION
  Report Type: Spontaneous
  Country: US (occurrence: US)
  Receive Date: 20171102
  Receipt Date: 20180430
  Transmission Date: 20180711
  Serious: No
  Sender: FDA-Public Use
  Company Number: US-SA-2017SA195358

PATIENT
  Age: 86 Year
  Sex: Female
  Weight: 61.23 kg

DRUGS (8)
  1. CRESTOR [Concomitant]
     Active Substance: ROSUVASTATIN CALCIUM
  2. RED YEAST RICE [Concomitant]
     Active Substance: DIETARY SUPPLEMENT
  3. PRALUENT [Suspect]
     Active Substance: ALIROCUMAB
     Indication: MULTIPLE SCLEROSIS
     Route: 058
     Dates: start: 2015
  4. ALIROCUMAB PREFILLED PEN [Suspect]
     Active Substance: ALIROCUMAB
     Indication: MULTIPLE SCLEROSIS
     Dates: start: 2015
  5. ADVIL [Concomitant]
     Active Substance: IBUPROFEN
  6. ASPIRIN. [Concomitant]
     Active Substance: ASPIRIN
  7. OMEGA 3 [Concomitant]
     Active Substance: OMEGA-3 FATTY ACIDS
  8. VITAMIN E [Concomitant]
     Active Substance: .ALPHA.-TOCOPHEROL

REACTIONS (2)
  - Contusion [Unknown]
  - Rhinorrhoea [Unknown]

NARRATIVE: CASE EVENT DATE: 2015
